FAERS Safety Report 21893119 (Version 2)
Quarter: 2023Q1

REPORT INFORMATION
  Report Type: Spontaneous
  Country: GR (occurrence: GR)
  Receive Date: 20230121
  Receipt Date: 20230202
  Transmission Date: 20230418
  Serious: No
  Sender: FDA-Public Use
  Company Number: GR-CELLTRION INC.-2023GR000945

PATIENT

DRUGS (1)
  1. INFLIXIMAB [Suspect]
     Active Substance: INFLIXIMAB
     Indication: Psoriasis
     Dosage: 300MG / INDUCTION SCHEME

REACTIONS (2)
  - Intentional dose omission [Unknown]
  - Underdose [Unknown]
